FAERS Safety Report 16008099 (Version 1)
Quarter: 2019Q1

REPORT INFORMATION
  Report Type: Report from Study
  Country: FR (occurrence: FR)
  Receive Date: 20190226
  Receipt Date: 20190226
  Transmission Date: 20190418
  Serious: Yes (Hospitalization, Other)
  Sender: FDA-Public Use
  Company Number: FR-PFIZER INC-2019072775

PATIENT
  Age: 73 Year
  Sex: Female
  Weight: 99 kg

DRUGS (2)
  1. LETROZOLE. [Suspect]
     Active Substance: LETROZOLE
     Indication: BREAST CANCER METASTATIC
     Dosage: 2.5 MG, UNK
     Route: 048
     Dates: start: 20171004
  2. PALBOCICLIB [Suspect]
     Active Substance: PALBOCICLIB
     Indication: BREAST CANCER METASTATIC
     Dosage: 100 MG, CYCLIC
     Route: 048
     Dates: start: 20171004, end: 20181109

REACTIONS (2)
  - Second primary malignancy [Not Recovered/Not Resolved]
  - Squamous cell carcinoma of the hypopharynx [Not Recovered/Not Resolved]
